FAERS Safety Report 7381925-4 (Version None)
Quarter: 2011Q1

REPORT INFORMATION
  Report Type: 
  Country: None (occurrence: None)
  Receive Date: 20110329
  Receipt Date: 20110317
  Transmission Date: 20110831
  Serious: Yes (Other)
  Sender: FDA-Public Use
  Company Number: US-ELI_LILLY_AND_COMPANY-US201101007579

PATIENT
  Sex: Male

DRUGS (2)
  1. GEMZAR [Suspect]
     Dates: start: 20101201
  2. CARBOPLATIN [Concomitant]

REACTIONS (1)
  - RAYNAUD'S PHENOMENON [None]
